FAERS Safety Report 5261269-7 (Version None)
Quarter: 2007Q1

REPORT INFORMATION
  Report Type: 
  Country: None (occurrence: None)
  Receive Date: 20070309
  Receipt Date: 20070227
  Transmission Date: 20070707
  Serious: Yes (Other)
  Sender: FDA-Public Use
  Company Number: US-PFIZER INC-2007016543

PATIENT
  Sex: Female
  Weight: 68 kg

DRUGS (5)
  1. LYRICA [Suspect]
     Indication: FIBROMYALGIA
  2. PRILOSEC [Concomitant]
  3. CALCIUM [Concomitant]
  4. PROVIGIL [Concomitant]
  5. NEXIUM [Concomitant]

REACTIONS (2)
  - COGNITIVE DISORDER [None]
  - THYROID DISORDER [None]
